FAERS Safety Report 6591168-X (Version None)
Quarter: 2010Q1

REPORT INFORMATION
  Report Type: 
  Country: None (occurrence: None)
  Receive Date: 20100219
  Receipt Date: 20100217
  Transmission Date: 20100710
  Serious: Yes (Hospitalization)
  Sender: FDA-Public Use
  Company Number: US-GILEAD-2010-0027143

PATIENT
  Sex: Female
  Weight: 93.07 kg

DRUGS (10)
  1. LETAIRIS [Suspect]
     Indication: PULMONARY ARTERIAL HYPERTENSION
     Route: 048
     Dates: start: 20090603
  2. REVATIO [Concomitant]
  3. LASIX [Concomitant]
  4. ALDACTONE [Concomitant]
  5. MUCINEX [Concomitant]
  6. PANTOPRAZOLE [Concomitant]
  7. VITAMIN D [Concomitant]
  8. CALCITRIOL [Concomitant]
  9. ALLOPURINOL [Concomitant]
  10. COLCHICINE [Concomitant]

REACTIONS (1)
  - LUNG DISORDER [None]
